FAERS Safety Report 8454014-5 (Version None)
Quarter: 2012Q2

REPORT INFORMATION
  Report Type: 
  Country: None (occurrence: None)
  Receive Date: 20120323
  Receipt Date: 20110818
  Transmission Date: 20120825
  Serious: Yes (Other)
  Sender: FDA-Public Use
  Company Number: 163-21880-11082420

PATIENT
  Age: 60 Year
  Sex: Male

DRUGS (12)
  1. METFFORMIN HYDROCHLORIDE [Concomitant]
  2. NOVOLIN N [Concomitant]
  3. AMLODIPINE [Concomitant]
  4. ATENOLOL [Concomitant]
  5. ZOLPIDEM [Concomitant]
  6. REVLIMID [Suspect]
     Indication: MULTIPLE MYELOMA
     Dosage: 25 MG, QD X 21 D/28 D, PO, 10 MG, QD X 21 D/28 D, PO
     Route: 048
     Dates: start: 20100201, end: 20110301
  7. REVLIMID [Suspect]
     Indication: MULTIPLE MYELOMA
     Dosage: 25 MG, QD X 21 D/28 D, PO, 10 MG, QD X 21 D/28 D, PO
     Route: 048
     Dates: start: 20110301, end: 20110701
  8. PREDNISONE TAB [Concomitant]
  9. ALKERAN [Concomitant]
  10. GLIPIZIDE [Concomitant]
  11. ZOCOR [Concomitant]
  12. WARFARIN SODIUM [Concomitant]

REACTIONS (1)
  - NEUTROPENIA [None]
